FAERS Safety Report 19076953 (Version 1)
Quarter: 2021Q1

REPORT INFORMATION
  Report Type: Other
  Country: US (occurrence: US)
  Receive Date: 20210331
  Receipt Date: 20210331
  Transmission Date: 20210420
  Serious: Yes (Hospitalization, Other)
  Sender: FDA-Public Use
  Company Number: US-INNOGENIX, LLC-2108647

PATIENT
  Age: 55 Year
  Sex: Female

DRUGS (3)
  1. PROPRANOLOL HYDROCHLORIDE. [Suspect]
     Active Substance: PROPRANOLOL HYDROCHLORIDE
     Indication: HEART RATE
     Route: 065
  2. METHIMAZOLE. [Concomitant]
     Active Substance: METHIMAZOLE
     Route: 065
  3. DEXAMETHASONE. [Concomitant]
     Active Substance: DEXAMETHASONE
     Route: 065

REACTIONS (8)
  - Ventricular fibrillation [Unknown]
  - Bradyarrhythmia [Recovered/Resolved]
  - Metabolic acidosis [Unknown]
  - Hepatocellular injury [Unknown]
  - Toxicity to various agents [Unknown]
  - Renal injury [Unknown]
  - Overdose [Unknown]
  - Cardiac arrest [Unknown]
